FAERS Safety Report 19102109 (Version 2)
Quarter: 2021Q2

REPORT INFORMATION
  Report Type: Spontaneous
  Country: PL (occurrence: PL)
  Receive Date: 20210407
  Receipt Date: 20210423
  Transmission Date: 20210717
  Serious: Yes (Other)
  Sender: FDA-Public Use
  Company Number: PL-PFIZER INC-2021324065

PATIENT
  Age: 58 Year
  Sex: Female

DRUGS (1)
  1. LIPOSOMAL DOXORUBICIN HCL [Suspect]
     Active Substance: DOXORUBICIN HYDROCHLORIDE
     Indication: BREAST CANCER METASTATIC
     Dosage: 50 MG/M2, CYCLIC, 2 CYCLE (LIPOSOMAL DOXORUBICIN)
     Dates: start: 201806

REACTIONS (2)
  - Toxic erythema of chemotherapy [Recovered/Resolved]
  - Intertrigo [Recovered/Resolved]

NARRATIVE: CASE EVENT DATE: 2018
